FAERS Safety Report 17725405 (Version 2)
Quarter: 2020Q2

REPORT INFORMATION
  Report Type: Spontaneous
  Country: IT (occurrence: IT)
  Receive Date: 20200429
  Receipt Date: 20200504
  Transmission Date: 20200714
  Serious: Yes (Death, Other)
  Sender: FDA-Public Use
  Company Number: IT-PFIZER INC-2020165293

PATIENT
  Age: 49 Year
  Sex: Male

DRUGS (4)
  1. OXALIPLATIN. [Suspect]
     Active Substance: OXALIPLATIN
     Indication: ACINAR CELL CARCINOMA OF PANCREAS
  2. OXALIPLATIN. [Suspect]
     Active Substance: OXALIPLATIN
     Indication: METASTASES TO LIVER
     Dosage: UNK, CYCLIC
     Dates: start: 2009
  3. GEMCITABINE. [Concomitant]
     Active Substance: GEMCITABINE
     Indication: METASTASES TO LIVER
     Dosage: UNK
     Dates: start: 2009
  4. GEMCITABINE. [Concomitant]
     Active Substance: GEMCITABINE
     Indication: ACINAR CELL CARCINOMA OF PANCREAS

REACTIONS (1)
  - Neuropathy peripheral [Unknown]

NARRATIVE: CASE EVENT DATE: 2009
